FAERS Safety Report 5269312-6 (Version None)
Quarter: 2007Q1

REPORT INFORMATION
  Report Type: 
  Country: None (occurrence: None)
  Receive Date: 20070319
  Receipt Date: 20070221
  Transmission Date: 20070707
  Serious: Yes (Hospitalization, Other)
  Sender: FDA-Public Use
  Company Number: US-PFIZER INC-2007014351

PATIENT
  Sex: Female

DRUGS (4)
  1. CELEBREX [Suspect]
     Indication: ARTHRITIS
  2. CELEBREX [Suspect]
     Indication: PAIN IN EXTREMITY
  3. BEXTRA [Suspect]
     Indication: ARTHRITIS
     Dates: start: 20020821
  4. BEXTRA [Suspect]
     Indication: PAIN IN EXTREMITY

REACTIONS (1)
  - CEREBROVASCULAR ACCIDENT [None]
